FAERS Safety Report 7873821-0 (Version None)
Quarter: 2011Q4

REPORT INFORMATION
  Report Type: 
  Country: None (occurrence: None)
  Receive Date: 20111017
  Receipt Date: 20110104
  Transmission Date: 20120403
  Serious: Yes (Death)
  Sender: FDA-Public Use
  Company Number: 2011S1000036

PATIENT
  Sex: Female

DRUGS (4)
  1. DARVOCET-N 100 [Suspect]
     Indication: BACK PAIN
     Dosage: ORAL
     Route: 048
     Dates: start: 20060101, end: 20061201
  2. PRISTIQ [Suspect]
     Dates: end: 20081201
  3. ZOLOFT [Suspect]
     Dates: start: 20060101, end: 20080101
  4. VICODIN [Suspect]
     Dates: start: 20060101, end: 20081201

REACTIONS (1)
  - COMPLETED SUICIDE [None]
